FAERS Safety Report 18452946 (Version 1)
Quarter: 2020Q4

REPORT INFORMATION
  Report Type: Spontaneous
  Country: GB (occurrence: GB)
  Receive Date: 20201102
  Receipt Date: 20201102
  Transmission Date: 20210114
  Serious: Yes (Other)
  Sender: FDA-Public Use
  Company Number: GB-PFIZER INC-2020420228

PATIENT
  Age: 94 Year
  Sex: Female
  Weight: 44 kg

DRUGS (13)
  1. NEFOPAM [Concomitant]
     Active Substance: NEFOPAM
     Dosage: UNK, 3X/DAY
     Dates: start: 20200923, end: 20201008
  2. FELODIPINE. [Concomitant]
     Active Substance: FELODIPINE
     Dosage: 1 DF, 1X/DAY
     Dates: start: 20190715
  3. TRIMETHOPRIM. [Concomitant]
     Active Substance: TRIMETHOPRIM
     Dosage: 2 DF, 1X/DAY
     Dates: start: 20201005, end: 20201008
  4. BISOPROLOL [Concomitant]
     Active Substance: BISOPROLOL
     Dosage: 1 DF, 1X/DAY
     Dates: start: 20200819
  5. RAMIPRIL. [Concomitant]
     Active Substance: RAMIPRIL
     Dosage: 1 DF, 1X/DAY
     Dates: start: 20200716
  6. MORPHINE SULFATE. [Concomitant]
     Active Substance: MORPHINE SULFATE
     Dosage: 10 ML, 1X/DAY
     Dates: start: 20200923
  7. GABAPENTIN. [Suspect]
     Active Substance: GABAPENTIN
     Dosage: 100 MG (TAKE ONE A DAY ON DAY 1, THEN INCREASED)
     Dates: start: 20201001
  8. PREGABALIN. [Concomitant]
     Active Substance: PREGABALIN
     Dosage: 2 DF, 1X/DAY
     Dates: start: 20201005
  9. GATALIN [Concomitant]
     Dosage: UNK, 1X/DAY
     Dates: start: 20200917
  10. BUTEC [Concomitant]
     Active Substance: BUPRENORPHINE
     Dosage: 1 DF, WEEKLY (APPLY)
     Dates: start: 20200921
  11. GALANTAMINE. [Concomitant]
     Active Substance: GALANTAMINE
     Dosage: UNK, 1X/DAY
     Dates: start: 20200909
  12. BUMETANIDE. [Concomitant]
     Active Substance: BUMETANIDE
     Dosage: 3 DF, 1X/DAY (TAKE TWO EACH MORNING AND ONE AT 12)
     Dates: start: 20190715
  13. SNO TEARS [Concomitant]
     Dosage: UNK (USE AS DIRECTED)
     Dates: start: 20190715

REACTIONS (3)
  - Hallucination [Recovering/Resolving]
  - Agitation [Recovering/Resolving]
  - Confusional state [Unknown]

NARRATIVE: CASE EVENT DATE: 202010
